FAERS Safety Report 6144797-1 (Version None)
Quarter: 2009Q2

REPORT INFORMATION
  Report Type: 
  Country: None (occurrence: None)
  Receive Date: 20090406
  Receipt Date: 20090326
  Transmission Date: 20091009
  Serious: Yes (Hospitalization)
  Sender: FDA-Public Use
  Company Number: US-JNJFOC-20090307213

PATIENT
  Age: 54 Year
  Sex: Female

DRUGS (4)
  1. REMICADE [Suspect]
     Indication: POLYARTHRITIS
     Route: 042
  2. REMICADE [Suspect]
     Indication: BEHCET'S SYNDROME
     Route: 042
  3. METHOTREXATE SODIUM [Concomitant]
     Indication: DRUG USE FOR UNKNOWN INDICATION
  4. PREDNISONE [Concomitant]
     Indication: DRUG USE FOR UNKNOWN INDICATION

REACTIONS (2)
  - CENTRAL NERVOUS SYSTEM LESION [None]
  - HEMIPARESIS [None]
